FAERS Safety Report 5633020-X (Version None)
Quarter: 2008Q1

REPORT INFORMATION
  Report Type: 
  Country: None (occurrence: None)
  Receive Date: 20080221
  Receipt Date: 20080214
  Transmission Date: 20080703
  Serious: Yes (Death, Hospitalization, Disabling)
  Sender: FDA-Public Use
  Company Number: US-BAYER-200814068NA

PATIENT
  Age: 90 Year
  Sex: Female

DRUGS (1)
  1. CIPRO [Suspect]
     Indication: CYSTITIS
     Dosage: TOTAL DAILY DOSE: 1000 MG
     Route: 048
     Dates: start: 20071011, end: 20071012

REACTIONS (9)
  - ABASIA [None]
  - DYSPHAGIA [None]
  - ERYTHEMA [None]
  - GUILLAIN-BARRE SYNDROME [None]
  - JOINT SWELLING [None]
  - MUSCULAR WEAKNESS [None]
  - OEDEMA PERIPHERAL [None]
  - PARALYSIS [None]
  - RESPIRATORY FAILURE [None]
